FAERS Safety Report 8479766-X (Version None)
Quarter: 2012Q2

REPORT INFORMATION
  Report Type: 
  Country: None (occurrence: None)
  Receive Date: 20120629
  Receipt Date: 20120618
  Transmission Date: 20120825
  Serious: Yes (Other)
  Sender: FDA-Public Use
  Company Number: CN-MYLANLABS-2012S1012229

PATIENT
  Age: 14 Year
  Sex: Male

DRUGS (2)
  1. LEUCOVORIN CALCIUM [Concomitant]
     Indication: B-CELL TYPE ACUTE LEUKAEMIA
     Route: 030
  2. METHOTREXATE [Suspect]
     Indication: B-CELL TYPE ACUTE LEUKAEMIA
     Dosage: INFUSION
     Route: 065

REACTIONS (2)
  - STEVENS-JOHNSON SYNDROME [None]
  - TYPE IV HYPERSENSITIVITY REACTION [None]
